FAERS Safety Report 9208267 (Version 3)
Quarter: 2013Q2

REPORT INFORMATION
  Report Type: Spontaneous
  Country: US (occurrence: US)
  Receive Date: 20130403
  Receipt Date: 20130529
  Transmission Date: 20140414
  Serious: Yes (Hospitalization, Other)
  Sender: FDA-Public Use
  Company Number: US-PFIZER INC-2013104761

PATIENT
  Age: 43 Year
  Sex: Female

DRUGS (5)
  1. SOLU-MEDROL [Suspect]
     Dosage: UNK
  2. PREDNISONE [Suspect]
     Dosage: UNK
  3. AVONEX [Suspect]
     Dosage: UNK
  4. TYSABRI [Suspect]
     Indication: MULTIPLE SCLEROSIS
     Dosage: 300 MG, QM
     Route: 042
     Dates: start: 20120419, end: 201211
  5. REBIF [Suspect]
     Dosage: UNK
     Dates: start: 201203

REACTIONS (8)
  - Multiple sclerosis relapse [Unknown]
  - Faecal incontinence [Unknown]
  - Urinary incontinence [Unknown]
  - Wheelchair user [Unknown]
  - Fatigue [Unknown]
  - Tooth disorder [Unknown]
  - Asthenia [Unknown]
  - Skin lesion [Unknown]
